FAERS Safety Report 14805160 (Version 1)
Quarter: 2018Q2

REPORT INFORMATION
  Report Type: Spontaneous
  Country: FR (occurrence: FR)
  Receive Date: 20180425
  Receipt Date: 20180425
  Transmission Date: 20180711
  Serious: Yes (Other)
  Sender: FDA-Public Use
  Company Number: FR-MERCK KGAA-2046460

PATIENT
  Age: 36 Year
  Sex: Female

DRUGS (1)
  1. NOVOTHYROX [Suspect]
     Active Substance: LEVOTHYROXINE SODIUM
     Indication: PRODUCT USED FOR UNKNOWN INDICATION
     Dates: start: 201706

REACTIONS (14)
  - Fatigue [None]
  - Crying [None]
  - Disturbance in attention [None]
  - Amnesia [None]
  - Swelling [None]
  - Personal relationship issue [None]
  - Social avoidant behaviour [None]
  - Loss of personal independence in daily activities [None]
  - Alopecia [None]
  - Weight increased [None]
  - Blood thyroid stimulating hormone increased [None]
  - Psychiatric symptom [None]
  - Depression [None]
  - Mental impairment [None]

NARRATIVE: CASE EVENT DATE: 201707
